FAERS Safety Report 7527479-0 (Version None)
Quarter: 2011Q2

REPORT INFORMATION
  Report Type: 
  Country: None (occurrence: None)
  Receive Date: 20110527
  Receipt Date: 20110516
  Transmission Date: 20111010
  Serious: Yes (Death, Hospitalization)
  Sender: FDA-Public Use
  Company Number: UTC-007195

PATIENT
  Age: 60 Year
  Sex: Female

DRUGS (1)
  1. TYVASO [Suspect]
     Indication: PULMONARY HYPERTENSION
     Dosage: INHALATION
     Route: 055
     Dates: end: 20110425

REACTIONS (1)
  - RIGHT VENTRICULAR FAILURE [None]
